FAERS Safety Report 19822768 (Version 1)
Quarter: 2021Q3

REPORT INFORMATION
  Report Type: Spontaneous
  Country: IT (occurrence: IT)
  Receive Date: 20210913
  Receipt Date: 20210913
  Transmission Date: 20211014
  Serious: Yes (Other)
  Sender: FDA-Public Use
  Company Number: IT-PFIZER INC-202101148672

PATIENT
  Age: 27 Year
  Sex: Female

DRUGS (5)
  1. XAMAMINA [Suspect]
     Active Substance: DIMENHYDRINATE
     Dosage: UNK
  2. OLANZAPINE. [Suspect]
     Active Substance: OLANZAPINE
     Dosage: 10 MG, UNKNOWN FREQUENCY
  3. HALDOL [Suspect]
     Active Substance: HALOPERIDOL
     Dosage: UNK
     Route: 048
  4. VENLAFAXINE HCL [Suspect]
     Active Substance: VENLAFAXINE HYDROCHLORIDE
     Dosage: UNK
  5. BUSCOFENACT [Suspect]
     Active Substance: IBUPROFEN
     Dosage: 400 MG, UNKNOWN FREQUENCY

REACTIONS (2)
  - Agitation [Unknown]
  - Intentional self-injury [Unknown]
